FAERS Safety Report 7101150-1 (Version None)
Quarter: 2010Q4

REPORT INFORMATION
  Report Type: 
  Country: None (occurrence: None)
  Receive Date: 20101105
  Receipt Date: 20101102
  Transmission Date: 20110411
  Serious: Yes (Hospitalization, Disabling)
  Sender: FDA-Public Use
  Company Number: CRC-10-172

PATIENT
  Age: 21 Year
  Sex: Male
  Weight: 55 kg

DRUGS (2)
  1. PHENYTOIN SODIUM [Suspect]
     Dosage: 3 CAPS DAILY, ORALLY
     Route: 048
     Dates: start: 20100624
  2. E2090/CARBAMAZEPINE (ZONISAMIDE) DOUBLE BLIND [Suspect]
     Indication: EPILEPSY
     Dosage: ONE DAILY, ORALLY
     Route: 048
     Dates: start: 20090714

REACTIONS (3)
  - ANTICONVULSANT DRUG LEVEL INCREASED [None]
  - ATAXIA [None]
  - SOMNOLENCE [None]
